FAERS Safety Report 20344052 (Version 2)
Quarter: 2022Q1

REPORT INFORMATION
  Report Type: Spontaneous
  Country: US (occurrence: US)
  Receive Date: 20220118
  Receipt Date: 20220326
  Transmission Date: 20220423
  Serious: No
  Sender: FDA-Public Use
  Company Number: US-SA-SAC20220110000363

PATIENT
  Sex: Female

DRUGS (5)
  1. DUPIXENT [Suspect]
     Active Substance: DUPILUMAB
     Indication: Dermatitis atopic
     Dosage: 300 MG, QOW
     Route: 058
     Dates: start: 20210121
  2. VITAMIN C [Concomitant]
     Active Substance: ASCORBIC ACID
  3. ZINC ACETATE [Concomitant]
     Active Substance: ZINC ACETATE
  4. VITAMIN D NOS [Concomitant]
     Active Substance: VITAMIN D NOS
  5. METHYLPREDNISOLONE [Concomitant]
     Active Substance: METHYLPREDNISOLONE

REACTIONS (5)
  - Sleep disorder [Recovering/Resolving]
  - Discomfort [Recovering/Resolving]
  - Rash [Recovering/Resolving]
  - Arthralgia [Unknown]
  - Dermatitis atopic [Recovering/Resolving]
